FAERS Safety Report 8585867-8 (Version None)
Quarter: 2012Q3

REPORT INFORMATION
  Report Type: 
  Country: None (occurrence: None)
  Receive Date: 20120810
  Receipt Date: 20120807
  Transmission Date: 20120928
  Serious: Yes (Death)
  Sender: FDA-Public Use
  Company Number: BR-PFIZER INC-2012192980

PATIENT
  Age: 84 Year
  Sex: Female

DRUGS (2)
  1. XALCOM [Concomitant]
     Indication: GLAUCOMA
     Dosage: UNK
     Dates: start: 20120306
  2. LATANOPROST [Suspect]
     Indication: GLAUCOMA
     Dosage: 3 UG, 1X/DAY (ONE DROP EACH EYE ONCE A DAY)
     Route: 047
     Dates: start: 20000921

REACTIONS (1)
  - INFARCTION [None]
